FAERS Safety Report 17439975 (Version 21)
Quarter: 2024Q2

REPORT INFORMATION
  Report Type: Spontaneous
  Country: US (occurrence: US)
  Receive Date: 20200220
  Receipt Date: 20240614
  Transmission Date: 20240716
  Serious: Yes (Disabling, Other)
  Sender: FDA-Public Use
  Company Number: US-PFIZER INC-2020074205

PATIENT
  Age: 49 Year
  Sex: Female
  Weight: 52.154 kg

DRUGS (9)
  1. PREMARIN [Suspect]
     Active Substance: ESTROGENS, CONJUGATED
     Indication: Osteopenia
     Dosage: 0.9 MG, DAILY
     Route: 048
     Dates: start: 1987
  2. PREMARIN [Suspect]
     Active Substance: ESTROGENS, CONJUGATED
     Indication: Bone disorder
     Dosage: 1.25 MG, 1X/DAY (FOR A NUMBER OF DAYS)
  3. PREMARIN [Suspect]
     Active Substance: ESTROGENS, CONJUGATED
     Indication: Hormone replacement therapy
     Dosage: 0.9 MG
     Dates: start: 198704
  4. PREMARIN [Suspect]
     Active Substance: ESTROGENS, CONJUGATED
     Indication: Hysterectomy
     Dosage: 0.9 MG, 1X/DAY
     Route: 048
  5. PREMARIN [Suspect]
     Active Substance: ESTROGENS, CONJUGATED
     Indication: Skin disorder
     Dosage: 0.9MG ONCE A DAY
  6. PREMARIN [Suspect]
     Active Substance: ESTROGENS, CONJUGATED
     Indication: Vulvovaginal dryness
  7. PREMARIN [Suspect]
     Active Substance: ESTROGENS, CONJUGATED
     Indication: Vulvovaginal pruritus
  8. PREMARIN [Suspect]
     Active Substance: ESTROGENS, CONJUGATED
     Indication: Vaginal haemorrhage
  9. METHYLPHENIDATE [Concomitant]
     Active Substance: METHYLPHENIDATE
     Indication: Attention deficit hyperactivity disorder
     Dosage: 20 MG, THREE TIMES A DAY

REACTIONS (26)
  - Uterine haemorrhage [Recovering/Resolving]
  - Adenomyosis [Unknown]
  - Accident [Unknown]
  - Fall [Unknown]
  - Hand fracture [Unknown]
  - Blindness [Unknown]
  - Pain [Not Recovered/Not Resolved]
  - Fibromyalgia [Recovering/Resolving]
  - Vulvovaginal discomfort [Not Recovered/Not Resolved]
  - Vulvovaginal dryness [Not Recovered/Not Resolved]
  - Hyperhidrosis [Not Recovered/Not Resolved]
  - Pruritus [Unknown]
  - Herpes zoster [Unknown]
  - Therapeutic response unexpected [Unknown]
  - Hypersensitivity [Unknown]
  - Eye disorder [Recovering/Resolving]
  - Haematocrit decreased [Recovered/Resolved]
  - Therapeutic response unexpected [Unknown]
  - Irritable bowel syndrome [Unknown]
  - Injury [Unknown]
  - Stress [Unknown]
  - Malaise [Unknown]
  - Nausea [Unknown]
  - Illness [Unknown]
  - Pain [Recovered/Resolved]
  - Intentional dose omission [Unknown]

NARRATIVE: CASE EVENT DATE: 19991101
